FAERS Safety Report 7522622-1 (Version None)
Quarter: 2011Q2

REPORT INFORMATION
  Report Type: 
  Country: None (occurrence: None)
  Receive Date: 20110525
  Receipt Date: 20110511
  Transmission Date: 20111010
  Serious: Yes (Death)
  Sender: FDA-Public Use
  Company Number: AE 2011-207

PATIENT
  Age: 86 Year
  Sex: Female

DRUGS (14)
  1. BISACODYL [Concomitant]
  2. ACETAMINOPHEN [Concomitant]
  3. LEXAPRO [Concomitant]
  4. POTASSIUM CHLORIDE [Concomitant]
  5. FERROUR SULFATE [Concomitant]
  6. LOPERAMIDE [Concomitant]
  7. FAZACLO ODT [Suspect]
     Dosage: 25 MG DAILY PO
     Route: 048
     Dates: start: 20101011, end: 20110506
  8. THERA-PLUS [Concomitant]
  9. ALBUTEROL [Concomitant]
  10. MORPHINE SULFATE [Concomitant]
  11. FUROSEMIDE [Concomitant]
  12. TRAMADOL HCL [Concomitant]
  13. HALOPERIDOL [Concomitant]
  14. MILK MAGNESIA [Concomitant]

REACTIONS (1)
  - DEATH [None]
